FAERS Safety Report 5285703-1 (Version None)
Quarter: 2007Q1

REPORT INFORMATION
  Report Type: 
  Country: None (occurrence: None)
  Receive Date: 20070126
  Receipt Date: 20061128
  Transmission Date: 20070707
  Serious: Yes (Hospitalization)
  Sender: FDA-Public Use
  Company Number: 2006CT001000

PATIENT
  Age: 55 Year
  Sex: Female
  Weight: 78.9259 kg

DRUGS (12)
  1. VENTAVIS [Suspect]
     Indication: PULMONARY HYPERTENSION
     Dosage: 5 UG;6TO9X/DAY;INH
     Route: 055
     Dates: start: 20061101, end: 20061108
  2. REMICADE [Concomitant]
  3. PERCOCET [Concomitant]
  4. PRILOSEC [Concomitant]
  5. COLACE [Concomitant]
  6. SILDENAFIL CITRATE [Concomitant]
  7. ADVAIR DISKUS 100/50 [Concomitant]
  8. WARFARIN SODIUM [Concomitant]
  9. PREDNISONE [Concomitant]
  10. ALDACTONE [Concomitant]
  11. BUMEX [Concomitant]
  12. INSULIN [Concomitant]

REACTIONS (4)
  - CHEST PAIN [None]
  - DRUG INEFFECTIVE [None]
  - OEDEMA PERIPHERAL [None]
  - PULMONARY OEDEMA [None]
